FAERS Safety Report 6329308-X (Version None)
Quarter: 2009Q3

REPORT INFORMATION
  Report Type: 
  Country: None (occurrence: None)
  Receive Date: 20090826
  Receipt Date: 20090824
  Transmission Date: 20100115
  Serious: Yes (Hospitalization)
  Sender: FDA-Public Use
  Company Number: US-B.I. PHARMACEUTICALS,INC./RIDGEFIELD-2009-BP-09937BP

PATIENT
  Sex: Male
  Weight: 97.7 kg

DRUGS (3)
  1. SPIRIVA [Suspect]
     Indication: CHRONIC OBSTRUCTIVE PULMONARY DISEASE
     Dosage: 18 MCG
     Route: 055
     Dates: start: 20080828
  2. ACZ885 VS PLACEBO (CODE NOT BROKEN) [Suspect]
     Indication: CHRONIC OBSTRUCTIVE PULMONARY DISEASE
     Dates: start: 20080922
  3. TERAZOSIN HCL [Concomitant]
     Dates: start: 20080202

REACTIONS (3)
  - BENIGN PROSTATIC HYPERPLASIA [None]
  - NEPHROLITHIASIS [None]
  - URINARY RETENTION [None]
